FAERS Safety Report 20467972 (Version 1)
Quarter: 2022Q1

REPORT INFORMATION
  Report Type: Spontaneous
  Country: US (occurrence: US)
  Receive Date: 20220214
  Receipt Date: 20220214
  Transmission Date: 20220423
  Serious: Yes (Hospitalization, Other)
  Sender: FDA-Public Use
  Company Number: US-Accord-253312

PATIENT
  Age: 12 Year
  Sex: Male

DRUGS (2)
  1. ARIPIPRAZOLE [Interacting]
     Active Substance: ARIPIPRAZOLE
     Indication: Irritability
     Dosage: 2 MG DAILY
  2. FLUOXETINE [Interacting]
     Active Substance: FLUOXETINE HYDROCHLORIDE
     Indication: Autism spectrum disorder
     Dosage: INCREASED TO 40 MG DAILY

REACTIONS (5)
  - Hypersexuality [Recovered/Resolved]
  - Drug interaction [Unknown]
  - Off label use [Unknown]
  - Suicidal ideation [Unknown]
  - Homicidal ideation [Unknown]
